FAERS Safety Report 19421703 (Version 1)
Quarter: 2021Q2

REPORT INFORMATION
  Report Type: Spontaneous
  Country: US (occurrence: US)
  Receive Date: 20210616
  Receipt Date: 20210616
  Transmission Date: 20210717
  Serious: Yes (Hospitalization)
  Sender: FDA-Public Use
  Company Number: US-ABBVIE-21K-163-3948145-00

PATIENT
  Sex: Female

DRUGS (1)
  1. IMBRUVICA [Suspect]
     Active Substance: IBRUTINIB
     Indication: PRODUCT USED FOR UNKNOWN INDICATION
     Dosage: 420 MG TAB?1 TABLETS ONCE DAILY
     Route: 048

REACTIONS (4)
  - Asthenia [Unknown]
  - Malaise [Unknown]
  - Upper limb fracture [Unknown]
  - Diarrhoea [Unknown]
